FAERS Safety Report 9300560 (Version 2)
Quarter: 2013Q3

REPORT INFORMATION
  Report Type: Spontaneous
  Country: IT (occurrence: IT)
  Receive Date: 20130521
  Receipt Date: 20130702
  Transmission Date: 20140515
  Serious: Yes (Hospitalization)
  Sender: FDA-Public Use
  Company Number: IT-PFIZER INC-2013154728

PATIENT
  Age: 85 Year
  Sex: Female

DRUGS (4)
  1. CORDARONE [Suspect]
     Indication: ATRIAL FIBRILLATION
     Dosage: 1 DF, 1X/DAY
     Route: 048
     Dates: start: 20121107, end: 20130127
  2. ESOMEPRAZOLE MAGNESIUM [Concomitant]
     Dosage: UNK
  3. PROPANOLOL [Concomitant]
     Dosage: UNK
  4. URSODEOXYCHOLIC ACID [Concomitant]
     Dosage: UNK

REACTIONS (3)
  - Hypothyroidism [Recovering/Resolving]
  - Confusional state [Recovering/Resolving]
  - Asthenia [Recovering/Resolving]
